FAERS Safety Report 5810494-2 (Version None)
Quarter: 2008Q3

REPORT INFORMATION
  Report Type: 
  Country: None (occurrence: None)
  Receive Date: 20080715
  Receipt Date: 20080703
  Transmission Date: 20090109
  Serious: Yes (Hospitalization, Other)
  Sender: FDA-Public Use
  Company Number: JP-PFIZER INC-2008055823

PATIENT
  Age: 30 Year
  Sex: Male

DRUGS (2)
  1. HALCION [Suspect]
     Route: 048
  2. ALL OTHER THERAPEUTIC PRODUCTS [Suspect]

REACTIONS (3)
  - COMA [None]
  - RESPIRATORY DEPRESSION [None]
  - SUICIDE ATTEMPT [None]
